FAERS Safety Report 12823024 (Version 1)
Quarter: 2016Q4

REPORT INFORMATION
  Report Type: Report from Study
  Country: GR (occurrence: GR)
  Receive Date: 20161007
  Receipt Date: 20161007
  Transmission Date: 20170207
  Serious: No
  Sender: FDA-Public Use
  Company Number: PHHY2015GR070944

PATIENT
  Age: 66 Year
  Sex: Female

DRUGS (10)
  1. TASIGNA [Suspect]
     Active Substance: NILOTINIB
     Dosage: 600 MG, QD
     Route: 048
     Dates: start: 20160413
  2. TASIGNA [Suspect]
     Active Substance: NILOTINIB
     Dosage: 300 MG, QD
     Route: 048
     Dates: start: 20150202, end: 20150207
  3. SOLURIC [Concomitant]
     Active Substance: ALLOPURINOL
     Indication: HYPERURICAEMIA
     Dosage: 300 UNK, UNK (1 INTO 1)
     Route: 065
     Dates: start: 20150212
  4. LIPITOR [Concomitant]
     Active Substance: ATORVASTATIN CALCIUM
     Indication: HYPERCHOLESTEROLAEMIA
     Dosage: 10 UNK, UNK (1 INTO1)
     Route: 065
     Dates: start: 20150202
  5. TASIGNA [Suspect]
     Active Substance: NILOTINIB
     Dosage: 600 MG, QD
     Route: 048
     Dates: start: 20150505, end: 20150720
  6. TASIGNA [Suspect]
     Active Substance: NILOTINIB
     Dosage: 600 MG INTO 5 DAYS PLUS 450 MG FOR 2 DAYS
     Route: 048
     Dates: start: 20150720, end: 20160413
  7. HYPOLOC PLUS [Concomitant]
     Indication: HYPERTENSION
     Dosage: 5 PLUS 12.5 MG, UNK (1 INTO 1)
     Route: 065
     Dates: start: 20150202
  8. COVERAM [Concomitant]
     Active Substance: AMLODIPINE\PERINDOPRIL
     Indication: HYPERTENSION
     Dosage: UNK (1 INTO 1)
     Route: 065
     Dates: start: 20150202
  9. TASIGNA [Suspect]
     Active Substance: NILOTINIB
     Indication: CHRONIC MYELOID LEUKAEMIA
     Dosage: 600 MG, QD
     Route: 048
     Dates: start: 20131122, end: 20150202
  10. TASIGNA [Suspect]
     Active Substance: NILOTINIB
     Dosage: 450 MG, QD
     Route: 048
     Dates: start: 20150207, end: 20150505

REACTIONS (1)
  - Blood bilirubin increased [Not Recovered/Not Resolved]

NARRATIVE: CASE EVENT DATE: 20131218
